FAERS Safety Report 17850260 (Version 2)
Quarter: 2020Q3

REPORT INFORMATION
  Report Type: Spontaneous
  Country: US (occurrence: US)
  Receive Date: 20200602
  Receipt Date: 20200708
  Transmission Date: 20201103
  Serious: No
  Sender: FDA-Public Use
  Company Number: US-ASTRAZENECA-2020SE64167

PATIENT
  Sex: Male

DRUGS (1)
  1. BYDUREON [Suspect]
     Active Substance: EXENATIDE
     Route: 058

REACTIONS (4)
  - Memory impairment [Not Recovered/Not Resolved]
  - Intentional device misuse [Unknown]
  - Device issue [Recovered/Resolved]
  - Injection site haemorrhage [Recovered/Resolved]
